FAERS Safety Report 17887385 (Version 1)
Quarter: 2020Q2

REPORT INFORMATION
  Report Type: Spontaneous
  Country: US (occurrence: US)
  Receive Date: 20200611
  Receipt Date: 20200611
  Transmission Date: 20200714
  Serious: No
  Sender: FDA-Public Use
  Company Number: US-BRACCO-2020US01498

PATIENT
  Age: 55 Year
  Sex: Female

DRUGS (7)
  1. VALIUM [Concomitant]
     Active Substance: DIAZEPAM
     Indication: ANXIETY
     Dosage: 5 MG
     Dates: start: 20200401, end: 20200401
  2. VALIUM [Concomitant]
     Active Substance: DIAZEPAM
     Indication: CLAUSTROPHOBIA
  3. MULTIHANCE [Suspect]
     Active Substance: GADOBENATE DIMEGLUMINE
     Indication: MAGNETIC RESONANCE IMAGING BREAST
     Dosage: 16 ML, SINGLE
     Dates: start: 20200401, end: 20200401
  4. TOPAMAX [Concomitant]
     Active Substance: TOPIRAMATE
  5. VALIUM [Concomitant]
     Active Substance: DIAZEPAM
     Indication: ANXIETY
     Dosage: 5 MG
     Dates: start: 20200401, end: 20200401
  6. AMOXICILLIN. [Concomitant]
     Active Substance: AMOXICILLIN
     Indication: EAR INFECTION
  7. VALIUM [Concomitant]
     Active Substance: DIAZEPAM
     Indication: CLAUSTROPHOBIA

REACTIONS (1)
  - Nausea [Recovered/Resolved]

NARRATIVE: CASE EVENT DATE: 20200401
